FAERS Safety Report 9246673 (Version 2)
Quarter: 2014Q2

REPORT INFORMATION
  Report Type: Report from Study
  Country: US (occurrence: US)
  Receive Date: 20130422
  Receipt Date: 20140527
  Transmission Date: 20141212
  Serious: Yes (Other)
  Sender: FDA-Public Use
  Company Number: US-UCBSA-070748

PATIENT
  Age: 10 Month
  Sex: Male
  Weight: 2.5 kg

DRUGS (7)
  1. KEPPRA [Suspect]
     Indication: EPILEPSY
     Dosage: DAILY DOSE: 1500 MG
     Route: 063
  2. KEPPRA [Suspect]
     Indication: EPILEPSY
     Dosage: DAILY DOSE: 1500 MG
     Route: 064
  3. FOLIC ACID [Concomitant]
     Indication: PREGNANCY
     Route: 048
  4. VITAMIN D3 [Concomitant]
     Indication: VITAMIN D DEFICIENCY
     Route: 048
  5. SYNTHROID [Concomitant]
     Indication: HYPOTHYROIDISM
     Route: 048
  6. PRENATAL VITAMIN W/DHA [Concomitant]
     Indication: PREGNANCY
     Dosage: 1 TAB
     Route: 048
     Dates: start: 20110809
  7. LOVENOX [Concomitant]
     Indication: COAGULOPATHY
     Route: 058
     Dates: start: 20110809

REACTIONS (5)
  - Gross motor delay [Unknown]
  - Gastrooesophageal reflux disease [Unknown]
  - Feeding disorder [Unknown]
  - Foetal exposure during pregnancy [Recovered/Resolved]
  - Exposure during breast feeding [Recovered/Resolved]
